FAERS Safety Report 21663380 (Version 2)
Quarter: 2023Q1

REPORT INFORMATION
  Report Type: Spontaneous
  Country: US (occurrence: US)
  Receive Date: 20221130
  Receipt Date: 20230315
  Transmission Date: 20230418
  Serious: Yes (Death, Other)
  Sender: FDA-Public Use
  Company Number: US-PFIZER INC-202201330357

PATIENT
  Age: 16 Year
  Sex: Male

DRUGS (9)
  1. METHYLPREDNISOLONE SODIUM SUCCINATE [Suspect]
     Active Substance: METHYLPREDNISOLONE SODIUM SUCCINATE
     Indication: Heart transplant
     Dosage: 15 MG/KG
     Route: 042
  2. TACROLIMUS [Suspect]
     Active Substance: TACROLIMUS
     Indication: Heart transplant
     Dosage: INITIAL GOAL TROUGH 10-12?NG/ML
  3. TACROLIMUS [Suspect]
     Active Substance: TACROLIMUS
     Dosage: WEANED TO 6-8 NG/ML BY 6-MONTH POST-TRANSPLANT
  4. TACROLIMUS [Suspect]
     Active Substance: TACROLIMUS
     Dosage: WEANED TO TARGET TROUGH OF 5-8 NG/ML
  5. THYMOCYTE IMMUNE GLOBULIN NOS [Suspect]
     Active Substance: THYMOCYTE IMMUNE GLOBULIN NOS
     Indication: Heart transplant
     Dosage: 7.5 MG/KG TOTAL OVER 5 DAYS
  6. MYCOPHENOLATE MOFETIL [Suspect]
     Active Substance: MYCOPHENOLATE MOFETIL
     Indication: Heart transplant
     Dosage: 600?MG/M2, 2X/DAY
  7. MYCOPHENOLATE MOFETIL [Suspect]
     Active Substance: MYCOPHENOLATE MOFETIL
     Dosage: 590 MG/M2, 2X/DAY
  8. PREDNISONE [Suspect]
     Active Substance: PREDNISONE
     Indication: Heart transplant
     Dosage: UNK
  9. PREDNISONE [Suspect]
     Active Substance: PREDNISONE
     Dosage: WEANED TO 0.24 MG/KG/DAY BY 6-MONTH

REACTIONS (1)
  - Nocardiosis [Fatal]
